FAERS Safety Report 4709363-0 (Version None)
Quarter: 2005Q3

REPORT INFORMATION
  Report Type: 
  Country: None (occurrence: None)
  Receive Date: 20050706
  Receipt Date: 20050706
  Transmission Date: 20060218
  Serious: Yes (Disabling)
  Sender: FDA-Public Use
  Company Number: None

PATIENT
  Age: 45 Year
  Sex: Male
  Weight: 87.0906 kg

DRUGS (1)
  1. MESALAMINE [Suspect]
     Indication: COLITIS ULCERATIVE
     Dosage: ONCE    DAY   RECTAL
     Route: 054
     Dates: start: 20050501, end: 20050705

REACTIONS (4)
  - ANAL FISTULA [None]
  - PHARMACEUTICAL PRODUCT COMPLAINT [None]
  - PRURITUS ANI [None]
  - THERAPEUTIC RESPONSE UNEXPECTED WITH DRUG SUBSTITUTION [None]
